FAERS Safety Report 5941332-5 (Version None)
Quarter: 2008Q4

REPORT INFORMATION
  Report Type: 
  Country: None (occurrence: None)
  Receive Date: 20081105
  Receipt Date: 20081024
  Transmission Date: 20090506
  Serious: Yes (Hospitalization)
  Sender: FDA-Public Use
  Company Number: JP-JNJFOC-20081005710

PATIENT
  Sex: Female
  Weight: 49 kg

DRUGS (15)
  1. REMICADE [Suspect]
     Route: 042
  2. REMICADE [Suspect]
     Dosage: 1 INFUSION ON AN UNSPECIFIED DATE
     Route: 042
  3. REMICADE [Suspect]
     Indication: RHEUMATOID ARTHRITIS
     Route: 042
  4. RHEUMATREX [Suspect]
     Indication: RHEUMATOID ARTHRITIS
     Route: 048
  5. PREDONINE [Suspect]
     Indication: DRUG USE FOR UNKNOWN INDICATION
     Route: 048
  6. BENAMBAX [Concomitant]
     Dosage: ^X1/2 WEEK; ROUTE IH^
  7. DIOVAN [Concomitant]
     Route: 048
  8. ALESION [Concomitant]
     Route: 048
  9. NORVASC [Concomitant]
     Route: 048
  10. FOLIAMIN [Concomitant]
     Route: 048
  11. GASTER D [Concomitant]
     Route: 048
  12. PURSENNID [Concomitant]
     Route: 048
  13. LENDORMIN [Concomitant]
     Route: 048
  14. RHYTHMY [Concomitant]
     Route: 048
  15. BONALON [Concomitant]
     Route: 048

REACTIONS (1)
  - DISSEMINATED TUBERCULOSIS [None]
